FAERS Safety Report 11150033 (Version 3)
Quarter: 2015Q3

REPORT INFORMATION
  Report Type: Report from Study
  Country: US (occurrence: US)
  Receive Date: 20150529
  Receipt Date: 20150715
  Transmission Date: 20151125
  Serious: Yes (Hospitalization, Other)
  Sender: FDA-Public Use
  Company Number: US-GILEAD-2015-0155702

PATIENT
  Age: 71 Year
  Sex: Female

DRUGS (3)
  1. AMBRISENTAN [Suspect]
     Active Substance: AMBRISENTAN
     Indication: PULMONARY ARTERIAL HYPERTENSION
     Dosage: 5 MG, QD
     Route: 065
     Dates: start: 20130510
  2. ADEMPAS [Concomitant]
     Active Substance: RIOCIGUAT
  3. COUMADIN [Concomitant]
     Active Substance: WARFARIN SODIUM

REACTIONS (9)
  - Incontinence [Unknown]
  - Abdominal pain lower [Unknown]
  - Oedema [Recovered/Resolved]
  - Blood urine present [Unknown]
  - Cystitis radiation [Unknown]
  - Atrial fibrillation [Unknown]
  - Oedema peripheral [Unknown]
  - Urinary tract infection [Unknown]
  - Fluid retention [Unknown]
